FAERS Safety Report 8255793-2 (Version None)
Quarter: 2012Q2

REPORT INFORMATION
  Report Type: 
  Country: None (occurrence: None)
  Receive Date: 20120403
  Receipt Date: 20120229
  Transmission Date: 20120825
  Serious: Yes (Hospitalization)
  Sender: FDA-Public Use
  Company Number: US-ROCHE-1018508

PATIENT
  Sex: Male
  Weight: 76 kg

DRUGS (23)
  1. HERCEPTIN [Suspect]
     Indication: OESOPHAGEAL CANCER METASTATIC
     Dosage: LAST DOSE RECIEVED ON 14 FEB 2012.
     Dates: start: 20110510, end: 20111115
  2. XELODA [Suspect]
     Dates: end: 20120226
  3. DICYCLOMINE [Concomitant]
  4. LORAZEPAM [Concomitant]
  5. HERCEPTIN [Suspect]
     Dosage: LAST DOSE RECIEVED ON 14 FEB 2012.
     Dates: end: 20120214
  6. OXALIPLATIN [Suspect]
     Dates: end: 20120214
  7. METOPROLOL TARTRATE [Concomitant]
  8. ZOFRAN [Concomitant]
  9. ACTOS [Concomitant]
  10. POTASSIUM CHLORIDE [Concomitant]
  11. LISINOPRIL [Concomitant]
  12. DECADRON [Concomitant]
  13. OXYCODONE HCL [Concomitant]
  14. AVASTIN [Suspect]
     Indication: OESOPHAGEAL CANCER METASTATIC
     Dates: start: 20110517, end: 20111115
  15. XELODA [Suspect]
     Indication: OESOPHAGEAL CANCER METASTATIC
     Dates: start: 20110517, end: 20111129
  16. COMPAZINE [Concomitant]
  17. DTO [Concomitant]
  18. PRILOSEC [Concomitant]
  19. AVASTIN [Suspect]
     Dosage: LAST DOSE RECIEVED ON 14 FEB 2012
     Dates: end: 20120214
  20. OXALIPLATIN [Suspect]
     Indication: OESOPHAGEAL CANCER METASTATIC
     Dates: start: 20110517, end: 20111115
  21. LOMOTIL [Concomitant]
  22. PREDNISONE [Concomitant]
  23. METHYLPHENIDATE [Concomitant]

REACTIONS (5)
  - NAUSEA [None]
  - DEHYDRATION [None]
  - DYSPNOEA [None]
  - PNEUMOMEDIASTINUM [None]
  - VOMITING [None]
